FAERS Safety Report 5837550-7 (Version None)
Quarter: 2008Q3

REPORT INFORMATION
  Report Type: 
  Country: None (occurrence: None)
  Receive Date: 20080807
  Receipt Date: 20080729
  Transmission Date: 20090109
  Serious: Yes (Death)
  Sender: FDA-Public Use
  Company Number: IT-PFIZER INC-2008063768

PATIENT
  Sex: Male

DRUGS (3)
  1. VIAGRA [Suspect]
     Indication: ERECTILE DYSFUNCTION
     Route: 048
     Dates: start: 20050101, end: 20080622
  2. OLMESARTAN MEDOXOMIL [Interacting]
     Indication: HYPERTENSION
     Route: 048
     Dates: start: 20080417, end: 20080622
  3. OLMESARTAN MEDOXOMIL [Interacting]
     Indication: HYPERTENSION
     Route: 048
     Dates: start: 20080417, end: 20080622

REACTIONS (2)
  - DRUG INTERACTION [None]
  - SUDDEN DEATH [None]
